FAERS Safety Report 7504124-1 (Version None)
Quarter: 2011Q2

REPORT INFORMATION
  Report Type: 
  Country: None (occurrence: None)
  Receive Date: 20110524
  Receipt Date: 20110524
  Transmission Date: 20111010
  Serious: Yes (Other)
  Sender: FDA-Public Use
  Company Number: None

PATIENT
  Sex: Male
  Weight: 66.2252 kg

DRUGS (2)
  1. LYRICA [Suspect]
     Indication: SPINAL CORD INJURY
     Dosage: 75 MG BID
     Dates: start: 20090101, end: 20100101
  2. LYRICA [Suspect]
     Indication: BACK INJURY
     Dosage: 75 MG BID
     Dates: start: 20090101, end: 20100101

REACTIONS (4)
  - LETHARGY [None]
  - WEIGHT INCREASED [None]
  - JOINT SWELLING [None]
  - VISION BLURRED [None]
